FAERS Safety Report 7297283-X (Version None)
Quarter: 2010Q4

REPORT INFORMATION
  Report Type: 
  Country: None (occurrence: None)
  Receive Date: 20101227
  Receipt Date: 20100816
  Transmission Date: 20110411
  Serious: Yes (Other)
  Sender: FDA-Public Use
  Company Number: WAES 1008USA02039

PATIENT
  Sex: Male

DRUGS (1)
  1. ZETIA [Suspect]
     Dosage: 10 MG/PO
     Route: 048
     Dates: start: 20090101

REACTIONS (1)
  - PANCREATITIS [None]
